FAERS Safety Report 7198461-0 (Version None)
Quarter: 2010Q4

REPORT INFORMATION
  Report Type: 
  Country: None (occurrence: None)
  Receive Date: 20101227
  Receipt Date: 20101215
  Transmission Date: 20110411
  Serious: Yes (Death)
  Sender: FDA-Public Use
  Company Number: US-CELGENEUS-163-21880-08050027

PATIENT
  Age: 69 Year
  Sex: Male
  Weight: 126.2 kg

DRUGS (5)
  1. REVLIMID [Suspect]
     Route: 048
     Dates: start: 20080331, end: 20080422
  2. REVLIMID [Suspect]
     Route: 048
     Dates: start: 20071025
  3. NEUPOGEN [Concomitant]
     Route: 065
     Dates: end: 20071028
  4. MELPHALAN [Concomitant]
     Route: 065
     Dates: end: 20071113
  5. DECADRON [Concomitant]
     Route: 042

REACTIONS (1)
  - SEPSIS [None]
